FAERS Safety Report 8814845 (Version 3)
Quarter: 2012Q4

REPORT INFORMATION
  Report Type: 
  Country: NL (occurrence: NL)
  Receive Date: 20120928
  Receipt Date: 20121114
  Transmission Date: 20130627
  Serious: Yes (Hospitalization)
  Sender: FDA-Public Use
  Company Number: NL-PFIZER INC-2012234790

PATIENT
  Age: 53 Year
  Sex: Female
  Weight: 79 kg

DRUGS (9)
  1. GENOTROPIN [Suspect]
     Indication: GROWTH HORMONE DEFICIENCY
     Dosage: 0.6 mg, 1x/day, 7injections/week
     Route: 058
     Dates: start: 20090513
  2. HYDROCORTISONE [Concomitant]
     Indication: BLOOD CORTICOTROPHIN DECREASED
     Dosage: UNK
     Dates: start: 19820401
  3. ESTRADERM [Concomitant]
     Indication: LUTEINISING HORMONE DEFICIENCY
     Dosage: UNK
     Dates: start: 19910901
  4. ESTRADERM [Concomitant]
     Indication: FOLLICLE STIMULATING HORMONE DECREASED
  5. ESTRADERM [Concomitant]
     Indication: HYPOGONADISM FEMALE
  6. ZOCOR ^MSD^ [Concomitant]
     Indication: PURE HYPERCHOLESTEROLAEMIA
     Dosage: UNK
     Dates: start: 19980525
  7. LEVOTHYROXINE [Concomitant]
     Indication: TSH DECREASED
     Dosage: UNK
     Dates: start: 19820401
  8. LEVOTHYROXINE [Concomitant]
     Indication: PRIMARY HYPOTHYROIDISM
  9. CACIUMCARBONAAT [Concomitant]
     Indication: OSTEOPOROSIS
     Dosage: UNK
     Dates: start: 20050125

REACTIONS (1)
  - Osteoarthritis [Recovered/Resolved]
